FAERS Safety Report 4518127-2 (Version None)
Quarter: 2004Q4

REPORT INFORMATION
  Report Type: 
  Country: None (occurrence: None)
  Receive Date: 20041130
  Receipt Date: 20041117
  Transmission Date: 20050328
  Serious: Yes (Disabling, Other)
  Sender: FDA-Public Use
  Company Number: 2004094822

PATIENT
  Sex: Male
  Weight: 93.8946 kg

DRUGS (4)
  1. MAXAQUIN [Suspect]
     Indication: PROSTATITIS
     Dosage: 400 MG (400 MG, DAILY), ORAL
     Route: 048
     Dates: start: 19910101
  2. TERZOSIN HYDROCHLORIDE (TERZOSIN HYDROCHLORIDE) [Concomitant]
  3. POTASSIUM PHOSPHATE MONOBASIC (POTASSIUM PHOSPHATE MONOBASIC [Concomitant]
  4. POTASSIUM CITRATE [Concomitant]

REACTIONS (10)
  - BLOOD GLUCOSE INCREASED [None]
  - BLOOD PRESSURE INCREASED [None]
  - DIVERTICULITIS [None]
  - HAEMORRHAGE [None]
  - HEADACHE [None]
  - NEPHROLITHIASIS [None]
  - POSTOPERATIVE HERNIA [None]
  - RENAL CYST [None]
  - SKIN DISCOLOURATION [None]
  - SUNBURN [None]
